FAERS Safety Report 8199433-X (Version None)
Quarter: 2012Q1

REPORT INFORMATION
  Report Type: 
  Country: None (occurrence: None)
  Receive Date: 20120309
  Receipt Date: 20120308
  Transmission Date: 20120608
  Serious: Yes (Death, Other)
  Sender: FDA-Public Use
  Company Number: GB-ABBOTT-11P-167-0854417-00

PATIENT
  Sex: Female

DRUGS (1)
  1. HUMIRA [Suspect]
     Indication: RHEUMATOID ARTHRITIS
     Route: 058
     Dates: start: 20031110, end: 20060802

REACTIONS (3)
  - PERIPHERAL ISCHAEMIA [None]
  - INFECTED SKIN ULCER [None]
  - STAPHYLOCOCCAL SKIN INFECTION [None]
